FAERS Safety Report 16964817 (Version 1)
Quarter: 2019Q4

REPORT INFORMATION
  Report Type: Spontaneous
  Country: US (occurrence: US)
  Receive Date: 20191028
  Receipt Date: 20191028
  Transmission Date: 20200122
  Serious: No
  Sender: FDA-Public Use
  Company Number: US-ALLERGAN-1934336US

PATIENT
  Age: 19 Year
  Sex: Female

DRUGS (4)
  1. PRENATAL VITAMINS                  /02014401/ [Concomitant]
     Active Substance: VITAMINS
  2. INFED [Suspect]
     Active Substance: IRON DEXTRAN
     Indication: ANAEMIA
     Dosage: 50 MG
     Route: 042
     Dates: start: 20190808, end: 20190808
  3. INFED [Suspect]
     Active Substance: IRON DEXTRAN
     Indication: PREGNANCY
  4. IRON [Concomitant]
     Active Substance: IRON
     Route: 048

REACTIONS (8)
  - Muscle spasms [Recovered/Resolved]
  - Nausea [Recovered/Resolved]
  - Pregnancy [Unknown]
  - Retching [Recovered/Resolved]
  - Dyspnoea [Recovered/Resolved]
  - Hyperhidrosis [Recovered/Resolved]
  - Administration site pain [Recovered/Resolved]
  - Chest pain [Recovered/Resolved]

NARRATIVE: CASE EVENT DATE: 20190808
